FAERS Safety Report 18509253 (Version 2)
Quarter: 2020Q4

REPORT INFORMATION
  Report Type: Spontaneous
  Country: US (occurrence: US)
  Receive Date: 20201117
  Receipt Date: 20201118
  Transmission Date: 20210114
  Serious: Yes (Death, Other)
  Sender: FDA-Public Use
  Company Number: US-JIANGSU HENGRUI MEDICINE CO., LTD.-2095982

PATIENT
  Age: 60 Year
  Sex: Female

DRUGS (3)
  1. HYDROMORPHONE [Suspect]
     Active Substance: HYDROMORPHONE
  2. DEXMEDETOMIDINE HYDROCHLORIDE INJECTION, 200 MCG/2 ML (100 MCG/ML) SIN [Suspect]
     Active Substance: DEXMEDETOMIDINE HYDROCHLORIDE
     Indication: SEDATION
  3. PROPOFOL. [Suspect]
     Active Substance: PROPOFOL

REACTIONS (9)
  - C-reactive protein increased [Unknown]
  - Hyperpyrexia [Fatal]
  - Renal failure [Fatal]
  - Metabolic acidosis [Fatal]
  - Serum ferritin increased [Unknown]
  - Brain injury [Fatal]
  - Off label use [Unknown]
  - Cardiac failure [Fatal]
  - Interleukin level increased [Unknown]
